FAERS Safety Report 6800661-3 (Version None)
Quarter: 2010Q2

REPORT INFORMATION
  Report Type: 
  Country: None (occurrence: None)
  Receive Date: 20100625
  Receipt Date: 20100625
  Transmission Date: 20101027
  Serious: Yes (Hospitalization)
  Sender: FDA-Public Use
  Company Number: None

PATIENT
  Sex: Female
  Weight: 75.7507 kg

DRUGS (2)
  1. VORINOSTAT 100MG [Suspect]
     Indication: RADIOTHERAPY
     Dosage: 400MG QD X 10 DAY PO
     Route: 048
     Dates: start: 20100607, end: 20100618
  2. VORINOSTAT 100MG [Suspect]
     Indication: RADIOTHERAPY
     Dosage: 400MG QD X 10 DAY PO
     Route: 048
     Dates: start: 20100619, end: 20100622

REACTIONS (2)
  - ARTHRALGIA [None]
  - MENTAL STATUS CHANGES [None]
